FAERS Safety Report 14124322 (Version 1)
Quarter: 2017Q4

REPORT INFORMATION
  Report Type: Spontaneous
  Country: US (occurrence: US)
  Receive Date: 20171025
  Receipt Date: 20171025
  Transmission Date: 20180321
  Serious: No
  Sender: FDA-Public Use
  Company Number: US-PFIZER INC-2017460622

PATIENT
  Age: 23 Year
  Sex: Female
  Weight: 96.61 kg

DRUGS (1)
  1. NEURONTIN [Suspect]
     Active Substance: GABAPENTIN
     Indication: BACK PAIN
     Dosage: UNK

REACTIONS (3)
  - Drug intolerance [Unknown]
  - Urticaria [Unknown]
  - Rash [Unknown]
